FAERS Safety Report 10712713 (Version 2)
Quarter: 2015Q1

REPORT INFORMATION
  Report Type: Report from Study
  Country: US (occurrence: US)
  Receive Date: 20150115
  Receipt Date: 20150226
  Transmission Date: 20150721
  Serious: Yes (Other)
  Sender: FDA-Public Use
  Company Number: US-AMGEN-USASL2015002655

PATIENT
  Age: 55 Year
  Sex: Female
  Weight: 71.2 kg

DRUGS (1)
  1. ENBREL [Suspect]
     Active Substance: ETANERCEPT
     Indication: RHEUMATOID ARTHRITIS
     Dosage: 50 MG, QWK
     Route: 058
     Dates: start: 2014

REACTIONS (6)
  - Weight increased [Unknown]
  - Anxiety [Unknown]
  - Tooth infection [Unknown]
  - Immune system disorder [Unknown]
  - Hunger [Unknown]
  - Rheumatoid arthritis [Unknown]
